FAERS Safety Report 13330774 (Version 2)
Quarter: 2017Q2

REPORT INFORMATION
  Report Type: Report from Study
  Country: US (occurrence: US)
  Receive Date: 20170313
  Receipt Date: 20170407
  Transmission Date: 20170830
  Serious: Yes (Hospitalization)
  Sender: FDA-Public Use
  Company Number: US-PFIZER INC-2017026997

PATIENT
  Age: 56 Year
  Sex: Female

DRUGS (12)
  1. SUTENT [Suspect]
     Active Substance: SUNITINIB MALATE
     Dosage: 50 MG, DAILY
     Route: 048
     Dates: start: 20161001
  2. SUTENT [Suspect]
     Active Substance: SUNITINIB MALATE
     Dosage: UNK
     Dates: end: 20170221
  3. AMLODIPINE, VALSARTAN AND HYDROCHLOROTHIAZIDE [Concomitant]
     Active Substance: AMLODIPINE BESYLATE\HYDROCHLOROTHIAZIDE\VALSARTAN
     Indication: HYPERTENSION
     Dosage: UNK, 1X/DAY  [AMLODIPINE: 10MG]/ [VALSARTAN: 320MG]/ [HYDROCHLOROTHIAZIDE: 25MG]
  4. SUTENT [Suspect]
     Active Substance: SUNITINIB MALATE
     Dosage: 50 MG, DAILY
     Route: 048
     Dates: start: 20161001, end: 20170220
  5. SUTENT [Suspect]
     Active Substance: SUNITINIB MALATE
     Dosage: 50 MG, CYCLIC (DAILY FOR 2 WEEKS, OFF 1 WEEK, REPEAT)
     Route: 048
     Dates: start: 20170324
  6. SUTENT [Suspect]
     Active Substance: SUNITINIB MALATE
     Indication: RENAL CELL CARCINOMA
     Dosage: 50 MG, CYCLIC, (DAILY FOR 4 WEEKS, OFF 2 WEEKS)
     Route: 048
     Dates: start: 20161001, end: 20161101
  7. SUTENT [Suspect]
     Active Substance: SUNITINIB MALATE
     Dosage: 50 MG, CYCLIC, (DAILY FOR 4 WEEKS, OFF 2 WEEKS, REPEAT)
  8. SUTENT [Suspect]
     Active Substance: SUNITINIB MALATE
     Dosage: 50 MG, CYCLIC [50MG PER DAY, 2 WEEKS ON, 1 WEEK OFF Q 21 DAYS]
     Route: 048
     Dates: start: 20161004
  9. SUTENT [Suspect]
     Active Substance: SUNITINIB MALATE
     Dosage: 50 MG, CYCLIC, (DAILY FOR 2 WEEKS, OFF 1 WEEK, REPEAT)
     Route: 048
     Dates: start: 20161001, end: 20170220
  10. SYNTHROID [Concomitant]
     Active Substance: LEVOTHYROXINE SODIUM
     Indication: HYPOTHYROIDISM
     Dosage: 50 UG, 1X/DAY
     Dates: start: 20170110
  11. SUTENT [Suspect]
     Active Substance: SUNITINIB MALATE
     Dosage: 50 MG, CYCLIC, (DAILY FOR 2 WEEKS, OFF WEEK)
     Route: 048
     Dates: start: 20161221
  12. SPIRIVA [Concomitant]
     Active Substance: TIOTROPIUM BROMIDE MONOHYDRATE
     Dosage: 18 MG, 1X/DAY

REACTIONS (14)
  - Decreased appetite [Recovering/Resolving]
  - Acute kidney injury [Unknown]
  - Nausea [Recovering/Resolving]
  - Gastrooesophageal reflux disease [Unknown]
  - Wound [Unknown]
  - Condition aggravated [Unknown]
  - Diverticulitis [Unknown]
  - Anaemia [Unknown]
  - Hypertension [Unknown]
  - Arthralgia [Unknown]
  - Abscess [Unknown]
  - Dehydration [Unknown]
  - Diarrhoea [Recovering/Resolving]
  - Vomiting [Unknown]

NARRATIVE: CASE EVENT DATE: 201702
